FAERS Safety Report 15180565 (Version 1)
Quarter: 2018Q3

REPORT INFORMATION
  Report Type: Spontaneous
  Country: US (occurrence: US)
  Receive Date: 20180623
  Receipt Date: 20180623
  Transmission Date: 20181010
  Serious: No
  Sender: FDA-Public Use
  Company Number: None

PATIENT
  Age: 48 Year
  Sex: Female
  Weight: 94.9 kg

DRUGS (1)
  1. VELCADE [Suspect]
     Active Substance: BORTEZOMIB
     Dates: end: 20180409

REACTIONS (6)
  - Unintended pregnancy [None]
  - Lymphatic disorder [None]
  - False positive investigation result [None]
  - Drug specific antibody present [None]
  - Human chorionic gonadotropin increased [None]
  - Blood disorder [None]

NARRATIVE: CASE EVENT DATE: 20180419
